FAERS Safety Report 7555568-3 (Version None)
Quarter: 2011Q2

REPORT INFORMATION
  Report Type: 
  Country: None (occurrence: None)
  Receive Date: 20110617
  Receipt Date: 20070509
  Transmission Date: 20111010
  Serious: Yes (Hospitalization, Other)
  Sender: FDA-Public Use
  Company Number: PHBS2007BR07616

PATIENT
  Sex: Female

DRUGS (7)
  1. LAMOTRIGINE [Concomitant]
  2. ACETYL SALICYLIC ACID COMPOUND TAB [Concomitant]
  3. SERTRALINE HYDROCHLORIDE [Concomitant]
  4. SEROQUEL [Concomitant]
  5. TRILEPTAL [Suspect]
     Indication: CONVULSION
     Dosage: 300 MG, Q8H
     Route: 048
  6. TRILEPTAL [Suspect]
     Dosage: 300 MG, TID
     Route: 048
  7. LEXAPRO [Concomitant]

REACTIONS (6)
  - CONCOMITANT DISEASE PROGRESSION [None]
  - BRAIN NEOPLASM [None]
  - CEREBRAL THROMBOSIS [None]
  - CONVULSION [None]
  - THROMBOCYTOSIS [None]
  - APHASIA [None]
